FAERS Safety Report 17070909 (Version 1)
Quarter: 2019Q4

REPORT INFORMATION
  Report Type: Spontaneous
  Country: US (occurrence: US)
  Receive Date: 20191125
  Receipt Date: 20191125
  Transmission Date: 20200122
  Serious: No
  Sender: FDA-Public Use
  Company Number: US-MYLANLABS-2019M1109054

PATIENT
  Sex: Female
  Weight: 50 kg

DRUGS (4)
  1. ALPRAZOLAM TABLETS, USP [Suspect]
     Active Substance: ALPRAZOLAM
     Indication: ANXIETY
     Dosage: UNK, TID THREE TIMES A DAY
  2. IBUPROFEN. [Concomitant]
     Active Substance: IBUPROFEN
     Dosage: UNK
  3. PROZAC [Concomitant]
     Active Substance: FLUOXETINE HYDROCHLORIDE
     Dosage: UNK, QD
  4. BUPROPION. [Concomitant]
     Active Substance: BUPROPION
     Dosage: 100 MILLIGRAM, QD

REACTIONS (1)
  - Headache [Not Recovered/Not Resolved]
